FAERS Safety Report 11540444 (Version 1)
Quarter: 2015Q3

REPORT INFORMATION
  Report Type: Spontaneous
  Country: US (occurrence: US)
  Receive Date: 20150923
  Receipt Date: 20150923
  Transmission Date: 20151125
  Serious: No
  Sender: FDA-Public Use
  Company Number: US-BEH-2014046520

PATIENT
  Sex: Female

DRUGS (63)
  1. DILTA XT [Concomitant]
  2. ALVESCO [Concomitant]
     Active Substance: CICLESONIDE
  3. ASTELIN [Concomitant]
     Active Substance: AZELASTINE HYDROCHLORIDE
  4. GAS-X [Concomitant]
     Active Substance: DIMETHICONE
  5. MUCINEX [Concomitant]
     Active Substance: GUAIFENESIN
  6. CALCIUM [Concomitant]
     Active Substance: CALCIUM
  7. SOMA [Concomitant]
     Active Substance: CARISOPRODOL
  8. VITAMINS [Concomitant]
     Active Substance: VITAMINS
  9. TIROSINT [Concomitant]
     Active Substance: LEVOTHYROXINE SODIUM
  10. NORMAL SALINE [Concomitant]
     Active Substance: SODIUM CHLORIDE
  11. EPIPEN [Concomitant]
     Active Substance: EPINEPHRINE
  12. ASACOL [Concomitant]
     Active Substance: MESALAMINE
  13. TOPAMAX [Concomitant]
     Active Substance: TOPIRAMATE
  14. VITAMIN D3 [Concomitant]
     Active Substance: CHOLECALCIFEROL
  15. DENAVIR [Concomitant]
     Active Substance: PENCICLOVIR
  16. MILK OF MAGNESIA [Concomitant]
     Active Substance: MAGNESIUM HYDROXIDE
  17. PEPTO-BISMOL [Concomitant]
     Active Substance: BISMUTH SUBSALICYLATE\CALCIUM CARBONATE
  18. MULTIVITAMINS [Concomitant]
     Active Substance: VITAMINS
  19. VITAMIN C [Concomitant]
     Active Substance: ASCORBIC ACID
  20. PRIVIGEN [Suspect]
     Active Substance: HUMAN IMMUNOGLOBULIN G
  21. CLONAZEPAM. [Concomitant]
     Active Substance: CLONAZEPAM
  22. DIPHENHYDRAMINE. [Concomitant]
     Active Substance: DIPHENHYDRAMINE
  23. PROCTOCREAM-HC [Concomitant]
  24. ONDANSETRON [Concomitant]
     Active Substance: ONDANSETRON
  25. PAMINE [Concomitant]
     Active Substance: METHSCOPOLAMINE BROMIDE
  26. COQ10 [Concomitant]
     Active Substance: UBIDECARENONE
  27. REMERON [Concomitant]
     Active Substance: MIRTAZAPINE
  28. XANAX [Concomitant]
     Active Substance: ALPRAZOLAM
  29. DILTIAZEM [Concomitant]
     Active Substance: DILTIAZEM
  30. FLUCONAZOLE. [Concomitant]
     Active Substance: FLUCONAZOLE
  31. PATANOL [Concomitant]
     Active Substance: OLOPATADINE HYDROCHLORIDE
  32. BENICAR [Concomitant]
     Active Substance: OLMESARTAN MEDOXOMIL
  33. EFFEXOR [Concomitant]
     Active Substance: VENLAFAXINE HYDROCHLORIDE
  34. SUMATRIPTAN. [Concomitant]
     Active Substance: SUMATRIPTAN
  35. AZO STANDARD [Concomitant]
     Active Substance: PHENAZOPYRIDINE HYDROCHLORIDE
  36. PHAZYME [Concomitant]
     Active Substance: DIMETHICONE 410
  37. ATROVENT [Concomitant]
     Active Substance: IPRATROPIUM BROMIDE
  38. PRIVIGEN [Suspect]
     Active Substance: HUMAN IMMUNOGLOBULIN G
     Indication: IMMUNODEFICIENCY COMMON VARIABLE
     Route: 042
  39. LIDOCAINE/PRILOCAINE [Concomitant]
  40. NEXIUM [Concomitant]
     Active Substance: ESOMEPRAZOLE MAGNESIUM
  41. VYTORIN [Concomitant]
     Active Substance: EZETIMIBE\SIMVASTATIN
  42. ABILIFY [Concomitant]
     Active Substance: ARIPIPRAZOLE
  43. CYMBALTA [Concomitant]
     Active Substance: DULOXETINE HYDROCHLORIDE
  44. IMODIUM A-D [Concomitant]
     Active Substance: LOPERAMIDE HYDROCHLORIDE
  45. TUMS [Concomitant]
     Active Substance: CALCIUM CARBONATE
  46. ACTONEL [Concomitant]
     Active Substance: RISEDRONATE SODIUM
  47. MAGNESIUM [Concomitant]
     Active Substance: MAGNESIUM
  48. MINOCYCLINE [Concomitant]
     Active Substance: MINOCYCLINE\MINOCYCLINE HYDROCHLORIDE
  49. ASMANEX [Concomitant]
     Active Substance: MOMETASONE FUROATE
  50. HEPARIN [Concomitant]
     Active Substance: HEPARIN SODIUM
  51. VENTOLIN [Concomitant]
     Active Substance: ALBUTEROL SULFATE
  52. LEXAPRO [Concomitant]
     Active Substance: ESCITALOPRAM OXALATE
  53. FLORA-Q [Concomitant]
  54. BACTROBAN [Concomitant]
     Active Substance: MUPIROCIN\MUPIROCIN CALCIUM
  55. CLINDAMYCIN [Concomitant]
     Active Substance: CLINDAMYCIN\CLINDAMYCIN PHOSPHATE
  56. PRIVIGEN [Suspect]
     Active Substance: HUMAN IMMUNOGLOBULIN G
  57. TRAZODONE [Concomitant]
     Active Substance: TRAZODONE HYDROCHLORIDE
  58. ACETAMINOPHEN. [Concomitant]
     Active Substance: ACETAMINOPHEN
  59. SODIUM CHLORIDE. [Concomitant]
     Active Substance: SODIUM CHLORIDE
  60. LUNESTA [Concomitant]
     Active Substance: ESZOPICLONE
  61. BENZONATATE. [Concomitant]
     Active Substance: BENZONATATE
  62. VITAMIN B12 [Concomitant]
     Active Substance: CYANOCOBALAMIN
  63. VITAMIN D [Concomitant]
     Active Substance: CHOLECALCIFEROL

REACTIONS (1)
  - Infection [Unknown]
